FAERS Safety Report 5071962-7 (Version None)
Quarter: 2006Q3

REPORT INFORMATION
  Report Type: 
  Country: None (occurrence: None)
  Receive Date: 20060714
  Receipt Date: 20060531
  Transmission Date: 20061208
  Serious: No
  Sender: FDA-Public Use
  Company Number: 2006SP002267

PATIENT
  Age: 64 Year
  Sex: Male

DRUGS (10)
  1. LUNESTA [Suspect]
     Indication: INSOMNIA
     Dosage: 2 MG;HS;ORAL
     Route: 048
     Dates: start: 20060524
  2. FEXOFENADINE [Concomitant]
  3. EZETIMIBE [Concomitant]
  4. LOSARTAN POTASSIUM AND HYDROCHLOROTHIAZIDE [Concomitant]
  5. CELECOXIB [Concomitant]
  6. PAROXETINE HCL [Concomitant]
  7. FENOFIBRATE [Concomitant]
  8. MULTIVITAMIN [Concomitant]
  9. CALCIUM GLUCONATE [Concomitant]
  10. ASPIRIN [Concomitant]

REACTIONS (2)
  - DRUG INEFFECTIVE [None]
  - INSOMNIA [None]
